FAERS Safety Report 8152846-4 (Version None)
Quarter: 2012Q1

REPORT INFORMATION
  Report Type: 
  Country: None (occurrence: None)
  Receive Date: 20120216
  Receipt Date: 20120216
  Transmission Date: 20120608
  Serious: No
  Sender: FDA-Public Use
  Company Number: None

PATIENT

DRUGS (1)
  1. SIMVASTATIN [Suspect]

REACTIONS (5)
  - FATIGUE [None]
  - URINARY TRACT OBSTRUCTION [None]
  - HICCUPS [None]
  - RENAL PAIN [None]
  - MUSCLE ATROPHY [None]
